FAERS Safety Report 8831460 (Version 1)
Quarter: 2012Q4

REPORT INFORMATION
  Report Type: 
  Country: JP (occurrence: JP)
  Receive Date: 20121009
  Receipt Date: 20121009
  Transmission Date: 20130627
  Serious: Yes (Hospitalization)
  Sender: FDA-Public Use
  Company Number: JP-B.I. PHARMACEUTICALS,INC./RIDGEFIELD-2012-BP-23072NB

PATIENT
  Age: 87 Year
  Sex: Female

DRUGS (6)
  1. PRAZAXA [Suspect]
     Indication: ATRIAL FIBRILLATION
     Dosage: 220 mg
     Route: 065
     Dates: start: 20110704, end: 20120911
  2. LASIX [Suspect]
     Dosage: 60 mg
     Route: 065
  3. PARIET [Suspect]
     Dosage: 20 mg
     Route: 065
     Dates: start: 20120825
  4. THEOPHYLLINE [Suspect]
     Dosage: 200 mg
     Route: 065
  5. BLOPRESS [Concomitant]
     Indication: HYPERTENSION
     Dosage: 4 mg
     Route: 065
  6. JANUVIA [Concomitant]
     Indication: DIABETES MELLITUS
     Dosage: 50 mg
     Route: 065

REACTIONS (3)
  - Tachycardia paroxysmal [Recovered/Resolved]
  - Renal impairment [Recovered/Resolved]
  - Pollakiuria [Not Recovered/Not Resolved]
